FAERS Safety Report 4451385-1 (Version None)
Quarter: 2004Q3

REPORT INFORMATION
  Report Type: 
  Country: None (occurrence: None)
  Receive Date: 20040916
  Receipt Date: 20040908
  Transmission Date: 20050211
  Serious: Yes (Other)
  Sender: FDA-Public Use
  Company Number: US-JNJFOC-20040702253

PATIENT
  Sex: Female

DRUGS (10)
  1. TOPAMAX [Suspect]
     Indication: EPILEPSY
     Route: 049
  2. PRENATAL CARE VITAMIN [Concomitant]
  3. PRENATAL CARE VITAMIN [Concomitant]
  4. PRENATAL CARE VITAMIN [Concomitant]
  5. PRENATAL CARE VITAMIN [Concomitant]
  6. PRENATAL CARE VITAMIN [Concomitant]
  7. PRENATAL CARE VITAMIN [Concomitant]
  8. PRENATAL CARE VITAMIN [Concomitant]
  9. PRENATAL CARE VITAMIN [Concomitant]
  10. ACETAMINOPHEN [Concomitant]

REACTIONS (3)
  - ABORTION SPONTANEOUS [None]
  - DRUG EXPOSURE DURING PREGNANCY [None]
  - PREGNANCY [None]
